FAERS Safety Report 25051040 (Version 1)
Quarter: 2025Q1

REPORT INFORMATION
  Report Type: Spontaneous
  Country: US (occurrence: US)
  Receive Date: 20250307
  Receipt Date: 20250307
  Transmission Date: 20250409
  Serious: Yes (Other)
  Sender: TEVA
  Company Number: US-TEVA-VS-3306760

PATIENT
  Age: 60 Year
  Sex: Female

DRUGS (1)
  1. MIFEPRISTONE [Suspect]
     Active Substance: MIFEPRISTONE
     Indication: Product used for unknown indication
     Dosage: TK 1 TABLET  300MG
     Route: 065

REACTIONS (2)
  - Renal disorder [Unknown]
  - Hernia [Unknown]
